FAERS Safety Report 24978821 (Version 4)
Quarter: 2025Q2

REPORT INFORMATION
  Report Type: Spontaneous
  Country: US (occurrence: None)
  Receive Date: 20250218
  Receipt Date: 20250425
  Transmission Date: 20250717
  Serious: Yes (Hospitalization, Other)
  Sender: MDD OPERATIONS
  Company Number: US-MDD US Operations-MDD202412-004696

PATIENT
  Age: 77 Year
  Sex: Male

DRUGS (8)
  1. APOKYN [Suspect]
     Active Substance: APOMORPHINE HYDROCHLORIDE
     Indication: Parkinson^s disease
     Route: 058
     Dates: start: 20241209
  2. APOKYN [Suspect]
     Active Substance: APOMORPHINE HYDROCHLORIDE
     Route: 058
     Dates: start: 20241209
  3. APOKYN [Suspect]
     Active Substance: APOMORPHINE HYDROCHLORIDE
     Dosage: NOT PROVIDED
     Route: 058
     Dates: start: 202412
  4. APOKYN [Suspect]
     Active Substance: APOMORPHINE HYDROCHLORIDE
     Route: 058
  5. APOKYN [Suspect]
     Active Substance: APOMORPHINE HYDROCHLORIDE
     Route: 058
     Dates: start: 20241209
  6. CARBIDOPA\LEVODOPA [Concomitant]
     Active Substance: CARBIDOPA\LEVODOPA
  7. AMANTADINE [Concomitant]
     Active Substance: AMANTADINE
  8. ENTACAPONE [Concomitant]
     Active Substance: ENTACAPONE

REACTIONS (13)
  - Nephrolithiasis [Unknown]
  - Foot fracture [Recovering/Resolving]
  - Fall [Recovering/Resolving]
  - Staphylococcal infection [Not Recovered/Not Resolved]
  - Cystitis [Unknown]
  - Gait disturbance [Unknown]
  - Urinary tract infection [Unknown]
  - Urinary tract infection [Unknown]
  - Somnolence [Recovered/Resolved]
  - Fall [Recovered/Resolved]
  - Drug effect less than expected [Unknown]
  - Product dose omission issue [Unknown]
  - Device leakage [Unknown]

NARRATIVE: CASE EVENT DATE: 20241201
